FAERS Safety Report 25037462 (Version 2)
Quarter: 2025Q3

REPORT INFORMATION
  Report Type: Spontaneous
  Country: EU (occurrence: EU)
  Receive Date: 20250304
  Receipt Date: 20250802
  Transmission Date: 20251020
  Serious: Yes (Death, Other)
  Sender: ALEXION PHARMACEUTICALS
  Company Number: EU-AstraZeneca-CH-00815946AM

PATIENT
  Age: 69 Year
  Sex: Female

DRUGS (4)
  1. IMFINZI [Suspect]
     Active Substance: DURVALUMAB
     Route: 065
  2. CORTISONE [Concomitant]
     Active Substance: CORTISONE
     Route: 065
  3. SULFAMETHOXAZOLE\TRIMETHOPRIM [Concomitant]
     Active Substance: SULFAMETHOXAZOLE\TRIMETHOPRIM
     Route: 065
  4. PREDNISOLONE [Concomitant]
     Active Substance: PREDNISOLONE
     Route: 065

REACTIONS (12)
  - Metastases to lung [Fatal]
  - Pancreatitis [Fatal]
  - Illness [Unknown]
  - Pancreastatin increased [Unknown]
  - Bladder adenocarcinoma recurrent [Unknown]
  - Dyspnoea [Unknown]
  - Thrombosis [Unknown]
  - Pneumonitis [Unknown]
  - Dyspnoea [Unknown]
  - Cardiac failure [Unknown]
  - Pneumonia fungal [Unknown]
  - Myocarditis [Unknown]
